FAERS Safety Report 16377105 (Version 1)
Quarter: 2019Q2

REPORT INFORMATION
  Report Type: Report from Study
  Country: FR (occurrence: FR)
  Receive Date: 20190531
  Receipt Date: 20190531
  Transmission Date: 20190711
  Serious: Yes (Death, Other)
  Sender: FDA-Public Use
  Company Number: FR-JNJFOC-20190528889

PATIENT

DRUGS (3)
  1. DOXORUBICIN HYDROCHLORIDE. [Suspect]
     Active Substance: DOXORUBICIN HYDROCHLORIDE
     Indication: HEPATOCELLULAR CARCINOMA
     Route: 042
  2. DOXORUBICIN HYDROCHLORIDE. [Suspect]
     Active Substance: DOXORUBICIN HYDROCHLORIDE
     Indication: HEPATOCELLULAR CARCINOMA
     Route: 065
  3. DOXORUBICIN HYDROCHLORIDE. [Suspect]
     Active Substance: DOXORUBICIN HYDROCHLORIDE
     Indication: HEPATOCELLULAR CARCINOMA
     Route: 042

REACTIONS (39)
  - Skin disorder [Unknown]
  - Catheter site infection [Unknown]
  - Hyperlipasaemia [Unknown]
  - Product use in unapproved indication [Unknown]
  - Off label use [Unknown]
  - General physical health deterioration [Fatal]
  - Neutropenia [Unknown]
  - Ascites [Unknown]
  - Asthenia [Unknown]
  - Anaemia [Unknown]
  - Palmar-plantar erythrodysaesthesia syndrome [Unknown]
  - N-terminal prohormone brain natriuretic peptide increased [Unknown]
  - Paraesthesia [Unknown]
  - Mucosal inflammation [Unknown]
  - Hypertransaminasaemia [Unknown]
  - Lung infection [Fatal]
  - Pleural effusion [Fatal]
  - Sepsis [Unknown]
  - Cardiac failure [Unknown]
  - Ischaemic cardiomyopathy [Unknown]
  - Oedema peripheral [Unknown]
  - Diarrhoea [Unknown]
  - Skin reaction [Unknown]
  - Interstitial lung disease [Fatal]
  - Subcutaneous abscess [Unknown]
  - Acute pulmonary oedema [Unknown]
  - Headache [Unknown]
  - Gingival bleeding [Unknown]
  - Neuropathy peripheral [Unknown]
  - Decreased appetite [Unknown]
  - Nausea [Unknown]
  - Drug hypersensitivity [Unknown]
  - Peritoneal haemorrhage [Fatal]
  - Thrombocytopenia [Unknown]
  - Hyperbilirubinaemia [Unknown]
  - Vomiting [Unknown]
  - Oxygen saturation decreased [Unknown]
  - Oedema [Unknown]
  - Osteitis [Unknown]
